FAERS Safety Report 17162899 (Version 1)
Quarter: 2019Q4

REPORT INFORMATION
  Report Type: Other
  Country: FR (occurrence: FR)
  Receive Date: 20191217
  Receipt Date: 20191217
  Transmission Date: 20200122
  Serious: Yes (Hospitalization)
  Sender: FDA-Public Use
  Company Number: FR-DENTSPLY-2019SCDP000664

PATIENT
  Age: 38 Year
  Sex: Female

DRUGS (1)
  1. XYLOCAINE WITH ADRENALINE (EPINEPHRINE) [Suspect]
     Active Substance: EPINEPHRINE BITARTRATE\LIDOCAINE HYDROCHLORIDE
     Indication: INJECTION SITE ANAESTHESIA
     Dosage: 15 MILLILITER, TOTAL
     Route: 058
     Dates: start: 20191024, end: 20191024

REACTIONS (3)
  - Lividity [None]
  - Embolia cutis medicamentosa [None]
  - Injection site necrosis [None]

NARRATIVE: CASE EVENT DATE: 20191025
